FAERS Safety Report 7445446-2 (Version None)
Quarter: 2011Q2

REPORT INFORMATION
  Report Type: 
  Country: None (occurrence: None)
  Receive Date: 20110427
  Receipt Date: 20110427
  Transmission Date: 20111010
  Serious: Yes (Life-Threatening, Hospitalization, Disabling, Other)
  Sender: FDA-Public Use
  Company Number: None

PATIENT
  Sex: Female
  Weight: 65.7716 kg

DRUGS (1)
  1. MIRENA [Suspect]
     Indication: CONTRACEPTION
     Dosage: IUD
     Dates: start: 20100601, end: 20101020

REACTIONS (16)
  - CONFUSIONAL STATE [None]
  - INSOMNIA [None]
  - FATIGUE [None]
  - NERVE INJURY [None]
  - HYPOAESTHESIA [None]
  - ABDOMINAL PAIN UPPER [None]
  - MUSCULOSKELETAL STIFFNESS [None]
  - BLOOD PRESSURE ABNORMAL [None]
  - DIZZINESS [None]
  - FALL [None]
  - PARAESTHESIA [None]
  - HEADACHE [None]
  - PAIN [None]
  - TREMOR [None]
  - VISUAL ACUITY REDUCED [None]
  - MENORRHAGIA [None]
